FAERS Safety Report 23738647 (Version 1)
Quarter: 2024Q2

REPORT INFORMATION
  Report Type: Spontaneous
  Country: CN (occurrence: CN)
  Receive Date: 20240412
  Receipt Date: 20240412
  Transmission Date: 20240716
  Serious: Yes (Hospitalization, Other)
  Sender: FDA-Public Use
  Company Number: CN-SANDOZ-SDZ2024CN037205

PATIENT
  Age: 76 Year
  Sex: Male

DRUGS (2)
  1. ZOLEDRONIC ACID [Suspect]
     Active Substance: ZOLEDRONIC ACID
     Indication: Prostate cancer
     Dosage: A SINGLE DOSE OF 4 MG, ONCE A MONTH
     Route: 041
     Dates: start: 2017
  2. BICALUTAMIDE [Concomitant]
     Active Substance: BICALUTAMIDE
     Indication: Prostate cancer
     Dosage: A SINGLE DOSE OF 50 MG, ONCE A DAY
     Route: 048

REACTIONS (1)
  - Osteonecrosis of jaw [Recovering/Resolving]
